FAERS Safety Report 24697220 (Version 1)
Quarter: 2024Q4

REPORT INFORMATION
  Report Type: Spontaneous
  Country: FR (occurrence: FR)
  Receive Date: 20241204
  Receipt Date: 20241204
  Transmission Date: 20250114
  Serious: Yes (Other)
  Sender: BAXTER
  Company Number: None

PATIENT
  Age: 23 Year
  Sex: Female

DRUGS (2)
  1. TRANSDERM SCOP [Suspect]
     Active Substance: SCOPOLAMINE
     Indication: Occupational exposure to product
     Dosage: UNK
     Dates: start: 20241029, end: 20241029
  2. SCOPOLAMINE [Suspect]
     Active Substance: SCOPOLAMINE
     Dosage: NOT ADMINISTERED
     Route: 065

REACTIONS (3)
  - Occupational exposure to product [Recovered/Resolved]
  - Mydriasis [Recovered/Resolved]
  - Vision blurred [Recovered/Resolved]

NARRATIVE: CASE EVENT DATE: 20241029
